FAERS Safety Report 8626031-3 (Version None)
Quarter: 2012Q3

REPORT INFORMATION
  Report Type: 
  Country: None (occurrence: None)
  Receive Date: 20120827
  Receipt Date: 20120824
  Transmission Date: 20120928
  Serious: Yes (Hospitalization)
  Sender: FDA-Public Use
  Company Number: US-ROCHE-1073966

PATIENT
  Sex: Male
  Weight: 76.7 kg

DRUGS (8)
  1. AVASTIN [Suspect]
     Indication: GLIOBLASTOMA MULTIFORME
     Route: 042
     Dates: start: 20100427, end: 20120509
  2. KEPPRA [Concomitant]
  3. ASCORBIC ACID [Concomitant]
  4. CELEXA [Concomitant]
  5. ZINC SULFATE [Concomitant]
  6. BORTEZOMIB [Suspect]
     Indication: GLIOBLASTOMA MULTIFORME
     Route: 042
     Dates: start: 20100427, end: 20100713
  7. FINASTERIDE [Concomitant]
  8. PROVIGIL [Concomitant]

REACTIONS (3)
  - PNEUMONIA [None]
  - CONVULSION [None]
  - PYREXIA [None]
